FAERS Safety Report 6691706-2 (Version None)
Quarter: 2010Q2

REPORT INFORMATION
  Report Type: 
  Country: None (occurrence: None)
  Receive Date: 20100422
  Receipt Date: 20090724
  Transmission Date: 20101027
  Serious: No
  Sender: FDA-Public Use
  Company Number: US-ASTRAZENECA-2009SE06092

PATIENT
  Age: 89 Year
  Sex: Male

DRUGS (1)
  1. TOPROL-XL [Suspect]
     Dosage: 12.5 MG-50 MG
     Route: 048
     Dates: start: 20040404

REACTIONS (6)
  - DEPRESSION [None]
  - DIZZINESS [None]
  - FATIGUE [None]
  - HEART RATE DECREASED [None]
  - HEART RATE INCREASED [None]
  - HYPERTENSION [None]
